FAERS Safety Report 18610989 (Version 1)
Quarter: 2020Q4

REPORT INFORMATION
  Report Type: Spontaneous
  Country: US (occurrence: US)
  Receive Date: 20201212
  Receipt Date: 20201212
  Transmission Date: 20210114
  Serious: No
  Sender: FDA-Public Use
  Company Number: None

PATIENT
  Age: 83 Year
  Sex: Male
  Weight: 77.4 kg

DRUGS (11)
  1. TORSEMIDE 60MG [Concomitant]
  2. CALCIUM/VIT D 600/200 [Concomitant]
  3. MULTIVITAMIN [Concomitant]
     Active Substance: VITAMINS
  4. SENNA 8.6 [Concomitant]
  5. CYCLOPHOSPHAMIDE. [Suspect]
     Active Substance: CYCLOPHOSPHAMIDE
     Dates: start: 20201013
  6. PROCHLORPERAZINE MALEATE 5MG [Concomitant]
  7. DOCUSATE 100MG [Concomitant]
     Active Substance: DOCUSATE
  8. LATANOPROST 0.005% [Concomitant]
     Active Substance: LATANOPROST
  9. WARFARIN 5MG [Concomitant]
     Active Substance: WARFARIN
  10. KLOR CON 10MEQ [Concomitant]
  11. METOPROLOL TARTRATE 100MG [Concomitant]
     Active Substance: METOPROLOL TARTRATE

REACTIONS (1)
  - Tremor [None]
